FAERS Safety Report 24576743 (Version 1)
Quarter: 2024Q4

REPORT INFORMATION
  Report Type: Spontaneous
  Country: CA (occurrence: None)
  Receive Date: 20241104
  Receipt Date: 20241104
  Transmission Date: 20250115
  Serious: Yes (Other)
  Sender: Public
  Company Number: None

PATIENT
  Age: 31 Year
  Sex: Female
  Weight: 65.25 kg

DRUGS (1)
  1. CIPROFLOXACIN [Suspect]
     Active Substance: CIPROFLOXACIN
     Indication: Urinary tract infection
     Dates: start: 20240703, end: 20240707

REACTIONS (11)
  - Adverse drug reaction [None]
  - Neuropathy peripheral [None]
  - Anxiety [None]
  - Burning sensation [None]
  - Hypoaesthesia oral [None]
  - Paraesthesia oral [None]
  - Panic attack [None]
  - Hypertension [None]
  - Nausea [None]
  - Diarrhoea [None]
  - White blood cells urine positive [None]

NARRATIVE: CASE EVENT DATE: 20240703
